FAERS Safety Report 20256002 (Version 1)
Quarter: 2021Q4

REPORT INFORMATION
  Report Type: Other
  Country: US (occurrence: None)
  Receive Date: 20211230
  Receipt Date: 20211230
  Transmission Date: 20220303
  Serious: Yes (Death)
  Sender: FDA-Public Use
  Company Number: US-ROCHE-2984655

PATIENT
  Age: 20 Year
  Sex: Male

DRUGS (5)
  1. TOCILIZUMAB [Suspect]
     Active Substance: TOCILIZUMAB
     Indication: Immunomodulatory therapy
     Route: 065
  2. METHYLPREDNISOLONE [Concomitant]
     Active Substance: METHYLPREDNISOLONE
  3. ETANERCEPT [Concomitant]
     Active Substance: ETANERCEPT
  4. INFLIXIMAB [Concomitant]
     Active Substance: INFLIXIMAB
  5. ANAKINRA [Concomitant]
     Active Substance: ANAKINRA

REACTIONS (2)
  - Hyperferritinaemia [Fatal]
  - Drug ineffective [Unknown]
